FAERS Safety Report 24245368 (Version 1)
Quarter: 2024Q3

REPORT INFORMATION
  Report Type: Report from Study
  Country: ID (occurrence: None)
  Receive Date: 20240824
  Receipt Date: 20240824
  Transmission Date: 20241016
  Serious: Yes (Death)
  Sender: ASTRAZENECA
  Company Number: 2024A192008

PATIENT
  Age: 19785 Day
  Sex: Female

DRUGS (1)
  1. LYNPARZA [Suspect]
     Active Substance: OLAPARIB
     Route: 048
     Dates: start: 20240625

REACTIONS (1)
  - Death [Fatal]

NARRATIVE: CASE EVENT DATE: 20240803
